FAERS Safety Report 5313548-2 (Version None)
Quarter: 2007Q2

REPORT INFORMATION
  Report Type: 
  Country: None (occurrence: None)
  Receive Date: 20070501
  Receipt Date: 20060404
  Transmission Date: 20071010
  Serious: No
  Sender: FDA-Public Use
  Company Number: 2006UW05899

PATIENT
  Age: 53 Year
  Sex: Female
  Weight: 43.1 kg

DRUGS (3)
  1. ENTOCORT [Suspect]
     Indication: CROHN'S DISEASE
     Route: 048
     Dates: start: 20060224
  2. ENTOCORT [Suspect]
     Route: 048
  3. ANTIDEPRESSANTS [Concomitant]

REACTIONS (1)
  - ANXIETY [None]
